FAERS Safety Report 5349969-1 (Version None)
Quarter: 2007Q2

REPORT INFORMATION
  Report Type: 
  Country: None (occurrence: None)
  Receive Date: 20070607
  Receipt Date: 20070522
  Transmission Date: 20071010
  Serious: No
  Sender: FDA-Public Use
  Company Number: GB-AMGEN-US214012

PATIENT
  Sex: Male
  Weight: 77 kg

DRUGS (8)
  1. ENBREL [Suspect]
     Indication: RHEUMATOID ARTHRITIS
     Route: 058
     Dates: start: 20051210
  2. DOXAZOSIN MESYLATE [Concomitant]
     Indication: HYPERTENSION
     Route: 048
     Dates: start: 20000101
  3. DIHYDROCODEINE BITARTRATE INJ [Concomitant]
     Indication: ANALGESIC EFFECT
     Route: 048
     Dates: start: 20000101
  4. BENDROFLUMETHIAZIDE [Concomitant]
     Indication: HYPERTENSION
     Route: 048
     Dates: start: 20000101
  5. DICLOFENAC [Concomitant]
     Indication: RHEUMATOID ARTHRITIS
     Route: 048
     Dates: start: 20030101
  6. LANSOPRAZOLE [Concomitant]
     Route: 048
     Dates: start: 20000101
  7. PERINDOPRIL [Concomitant]
     Indication: HYPERTENSION
     Dosage: 8MG DAILY, FREQUENCY UNKNOWN
     Route: 048
     Dates: start: 20000101
  8. ATENOLOL [Concomitant]
     Indication: HYPERTENSION
     Route: 048
     Dates: start: 20000101

REACTIONS (1)
  - RHEUMATOID NODULE [None]
